FAERS Safety Report 21125406 (Version 1)
Quarter: 2022Q3

REPORT INFORMATION
  Report Type: Spontaneous
  Country: IN (occurrence: IN)
  Receive Date: 20220725
  Receipt Date: 20220725
  Transmission Date: 20221027
  Serious: Yes (Death)
  Sender: FDA-Public Use
  Company Number: IN-PFIZER INC-2020412608

PATIENT
  Age: 47 Year
  Sex: Female

DRUGS (10)
  1. DACOMITINIB [Suspect]
     Active Substance: DACOMITINIB
     Indication: EGFR gene mutation
     Dosage: 30 MG, 1X/DAY
     Route: 048
     Dates: start: 20201022
  2. DACOMITINIB [Suspect]
     Active Substance: DACOMITINIB
     Dosage: 30 MG, 1X/DAY
     Route: 048
     Dates: start: 20201023
  3. DACOMITINIB [Suspect]
     Active Substance: DACOMITINIB
     Dosage: UNK
     Dates: end: 20211215
  4. DACOMITINIB [Suspect]
     Active Substance: DACOMITINIB
     Dosage: 1X/DAY (20 DAYS AND WILL TAKE A BREAK OF 10 DAYS)
     Route: 048
  5. DACOMITINIB [Suspect]
     Active Substance: DACOMITINIB
     Dosage: 1X/DAY (20 DAYS IN A MONTH)
     Route: 048
  6. DACOMITINIB [Suspect]
     Active Substance: DACOMITINIB
     Dosage: 30 MG, 1X/DAY
     Route: 048
     Dates: end: 20220425
  7. HYDROCORTISONE [Concomitant]
     Active Substance: HYDROCORTISONE
     Indication: Rash
     Dosage: UNK
  8. DOXYCYCLINE [Concomitant]
     Active Substance: DOXYCYCLINE
     Dosage: 100 MG, 1X/DAY
  9. LOPERAMIDE [Concomitant]
     Active Substance: LOPERAMIDE
     Indication: Diarrhoea
     Dosage: 2 MG, AS NEEDED
  10. PYRIGESIC [Concomitant]
     Indication: Pain
     Dosage: 650 MG, AS NEEDED

REACTIONS (8)
  - Death [Fatal]
  - Diarrhoea [Unknown]
  - Neoplasm progression [Unknown]
  - Skin laceration [Unknown]
  - Pruritus [Unknown]
  - Chest pain [Unknown]
  - Haemoptysis [Unknown]
  - Increased appetite [Unknown]

NARRATIVE: CASE EVENT DATE: 20220101
